FAERS Safety Report 14606213 (Version 1)
Quarter: 2018Q1

REPORT INFORMATION
  Report Type: Spontaneous
  Country: US (occurrence: US)
  Receive Date: 20180307
  Receipt Date: 20180307
  Transmission Date: 20180509
  Serious: Yes (Hospitalization, Other)
  Sender: FDA-Public Use
  Company Number: US-ALVOGEN-2018-ALVOGEN-095368

PATIENT
  Age: 29 Year
  Sex: Male

DRUGS (4)
  1. SIROLIMUS. [Concomitant]
     Active Substance: SIROLIMUS
     Indication: AUTOIMMUNE HEPATITIS
     Dosage: ()
  2. MESALAZINE [Interacting]
     Active Substance: MESALAMINE
     Indication: COLITIS ULCERATIVE
  3. MERCAPTOPURINE. [Interacting]
     Active Substance: MERCAPTOPURINE
     Indication: AUTOIMMUNE HEPATITIS
     Dosage: ()
  4. BUDESONIDE. [Suspect]
     Active Substance: BUDESONIDE
     Indication: AUTOIMMUNE HEPATITIS
     Dosage: ()

REACTIONS (6)
  - Febrile neutropenia [Unknown]
  - Bone marrow failure [Unknown]
  - Pancytopenia [Recovering/Resolving]
  - Haemorrhagic diathesis [Unknown]
  - Cellulitis [Unknown]
  - Drug interaction [Unknown]
